FAERS Safety Report 9476425 (Version 1)
Quarter: 2013Q3

REPORT INFORMATION
  Report Type: Spontaneous
  Country: GB (occurrence: GB)
  Receive Date: 20130826
  Receipt Date: 20130826
  Transmission Date: 20140515
  Serious: Yes (Disabling, Other)
  Sender: FDA-Public Use
  Company Number: GB-JNJFOC-20130813494

PATIENT
  Age: 83 Year
  Sex: Female
  Weight: 73.47 kg

DRUGS (4)
  1. TRAMADOL HYDROCHLORIDE [Suspect]
     Indication: MASTECTOMY
     Route: 048
     Dates: start: 1997, end: 1997
  2. ASPIRIN [Suspect]
     Indication: OSTEOARTHRITIS
     Route: 048
     Dates: start: 1952, end: 2013
  3. CODEINE PHOSPHATE [Suspect]
     Indication: OSTEOARTHRITIS
     Route: 048
     Dates: start: 1952, end: 2013
  4. PARACETAMOL [Concomitant]
     Indication: PRODUCT USED FOR UNKNOWN INDICATION
     Route: 065

REACTIONS (2)
  - Drug intolerance [Unknown]
  - Inadequate analgesia [Not Recovered/Not Resolved]
